FAERS Safety Report 19154474 (Version 1)
Quarter: 2021Q2

REPORT INFORMATION
  Report Type: Spontaneous
  Country: IN (occurrence: IN)
  Receive Date: 20210419
  Receipt Date: 20210419
  Transmission Date: 20210717
  Serious: Yes (Other)
  Sender: FDA-Public Use
  Company Number: IN-CMP PHARMA-2021CMP00004

PATIENT
  Age: 28 Year
  Sex: Male

DRUGS (3)
  1. METHYLPREDNISOLONE. [Suspect]
     Active Substance: METHYLPREDNISOLONE
     Indication: ENDOCRINE OPHTHALMOPATHY
     Dosage: UNK, 1X/WEEK
     Route: 042
  2. UNSPECIFIED ORAL STEROIDS [Concomitant]
     Indication: ENDOCRINE OPHTHALMOPATHY
     Route: 048
  3. TRIAMCINOLONE [Suspect]
     Active Substance: TRIAMCINOLONE
     Indication: ENDOCRINE OPHTHALMOPATHY
     Dosage: UNK, ONCE
     Route: 031

REACTIONS (2)
  - Eye movement disorder [Recovering/Resolving]
  - Abscess fungal [Recovered/Resolved]
